FAERS Safety Report 18212714 (Version 1)
Quarter: 2020Q3

REPORT INFORMATION
  Report Type: Spontaneous
  Country: US (occurrence: US)
  Receive Date: 20200829
  Receipt Date: 20200829
  Transmission Date: 20201103
  Serious: Yes (Other)
  Sender: FDA-Public Use
  Company Number: None

PATIENT
  Age: 61 Year
  Sex: Female
  Weight: 48.15 kg

DRUGS (1)
  1. ZIEXTENZO [Suspect]
     Active Substance: PEGFILGRASTIM-BMEZ
     Indication: NEUTROPENIA
     Route: 058
     Dates: start: 20200813, end: 20200814

REACTIONS (3)
  - Incorrect dose administered [None]
  - Extra dose administered [None]
  - Wrong schedule [None]

NARRATIVE: CASE EVENT DATE: 20200813
